FAERS Safety Report 5772330-2 (Version None)
Quarter: 2008Q2

REPORT INFORMATION
  Report Type: 
  Country: None (occurrence: None)
  Receive Date: 20080613
  Receipt Date: 20080609
  Transmission Date: 20081010
  Serious: Yes (Hospitalization)
  Sender: FDA-Public Use
  Company Number: FR-ROCHE-569620

PATIENT
  Sex: Male

DRUGS (8)
  1. RIVOTRIL [Suspect]
     Route: 048
     Dates: start: 20080304, end: 20080314
  2. LEXOMIL [Suspect]
     Route: 048
     Dates: start: 20080221, end: 20080314
  3. NOCTRAN [Suspect]
     Route: 048
     Dates: start: 20080304, end: 20080314
  4. NOCTRAN [Suspect]
     Route: 048
     Dates: start: 20080304, end: 20080314
  5. NOCTRAN [Suspect]
     Route: 048
     Dates: start: 20080304, end: 20080314
  6. ULTRACET [Suspect]
     Route: 048
     Dates: start: 20080215, end: 20080314
  7. ULTRACET [Suspect]
     Route: 048
     Dates: start: 20080215, end: 20080314
  8. DURAGESIC-100 [Suspect]
     Dosage: ROUTE REPORTED AS: LOCAL
     Route: 050
     Dates: start: 20080219, end: 20080314

REACTIONS (3)
  - CONFUSIONAL STATE [None]
  - DELIRIUM [None]
  - FAECALOMA [None]
